FAERS Safety Report 11132772 (Version 3)
Quarter: 2015Q2

REPORT INFORMATION
  Report Type: Spontaneous
  Country: AT (occurrence: AT)
  Receive Date: 20150522
  Receipt Date: 20150626
  Transmission Date: 20150821
  Serious: Yes (Death, Hospitalization)
  Sender: FDA-Public Use
  Company Number: AT-JNJFOC-20150515778

PATIENT
  Age: 87 Year
  Sex: Female
  Weight: 70 kg

DRUGS (22)
  1. DICLOFENAC [Concomitant]
     Active Substance: DICLOFENAC
     Dosage: 1-0-1
  2. DICLACHEXAL RAPID [Concomitant]
     Dosage: MONDAY, WEDNESDAY, FRIDAY: 1-0-1
  3. IMBRUVICA [Suspect]
     Active Substance: IBRUTINIB
     Indication: MANTLE CELL LYMPHOMA
     Dates: start: 20150417, end: 20150423
  4. CONCOR [Concomitant]
     Active Substance: BISOPROLOL FUMARATE
     Dosage: 1/2-0-0
  5. MIRTABENE [Concomitant]
     Active Substance: MIRTAZAPINE
     Dosage: MONDAY-WEDNESDAY-FRIDAY:0-0-0-1
  6. NOVALGIN [Concomitant]
     Active Substance: METAMIZOLE SODIUM
     Dosage: 1-1-1
  7. UROSIN [Concomitant]
     Active Substance: ALLOPURINOL
     Dosage: 1-0-0
  8. MEXALEN [Concomitant]
     Active Substance: LUBIPROSTONE
     Indication: CONSTIPATION
     Dosage: MONDAY-WEDNESDAY, FRIDAY: AT NEED
  9. FRAGMIN [Suspect]
     Active Substance: DALTEPARIN SODIUM
     Indication: PRODUCT USED FOR UNKNOWN INDICATION
     Dosage: PATIENT TOOK MEDICATION UNTIL PATIENT^S DEATH.
     Route: 058
     Dates: start: 20150331
  10. FRAGMIN [Suspect]
     Active Substance: DALTEPARIN SODIUM
     Indication: PRODUCT USED FOR UNKNOWN INDICATION
     Dosage: 7500.0 ^IE^
     Route: 058
     Dates: start: 201409
  11. PREDNISOLON [Concomitant]
     Active Substance: PREDNISOLONE
     Dosage: 1-0-0
  12. VERTIROSAN VITAMIN B6 [Concomitant]
     Indication: VERTIGO
     Dosage: IN CASE OF VERTIGO
  13. PANTOPRAZOLE SODIUM. [Concomitant]
     Active Substance: PANTOPRAZOLE SODIUM
     Dosage: 1-0-0
  14. QUETIALAN [Concomitant]
     Active Substance: QUETIAPINE FUMARATE
     Dosage: 0-0-1/2
  15. IMBRUVICA [Suspect]
     Active Substance: IBRUTINIB
     Indication: MANTLE CELL LYMPHOMA
     Dates: start: 20150323, end: 20150416
  16. NOVONORM [Concomitant]
     Active Substance: REPAGLINIDE
     Dosage: 0-1-0
  17. AQUAPHORIL [Concomitant]
     Dosage: MONDAY, WEDNESDAY, FRIDAY: 1-0-0
  18. LASIX [Concomitant]
     Active Substance: FUROSEMIDE
     Dosage: MONDAY, WEDNESDAY, FRIDAY:1-0-0
  19. MAGNESIUM VERLA [Concomitant]
     Active Substance: MAGNESIUM
     Dosage: 0-0-1-1
  20. FRAGMIN [Suspect]
     Active Substance: DALTEPARIN SODIUM
     Indication: PRODUCT USED FOR UNKNOWN INDICATION
     Route: 058
     Dates: start: 201210
  21. CALCIUM GLYCEROPHOSPHATE\CELLULOSE\POLYETHYLENE GLYCOL\SACCHARIN SODIUM\SODIUM HYDROXIDE\SODIUM LAURYL SULFATE\SODIUM MAGNESIUM SILICATE\SODIUM MONOFLUOROPHOSPHATE\SORBITOL\WATER [Concomitant]
     Active Substance: CALCIUM GLYCEROPHOSPHATE\POLYETHYLENE GLYCOLS\POWDERED CELLULOSE\SACCHARIN SODIUM DIHYDRATE\SODIUM HYDROXIDE\SODIUM LAURYL SULFATE\SODIUM MAGNESIUM SILICATE\SODIUM MONOFLUOROPHOSPHATE\SORBITOL\WATER
     Indication: CONSTIPATION
     Dosage: WHEN CONSTIPATED
  22. KCL RETARD [Concomitant]
     Active Substance: POTASSIUM CHLORIDE
     Dosage: 1 X 1

REACTIONS (7)
  - Circulatory collapse [Fatal]
  - Tonsillar disorder [Not Recovered/Not Resolved]
  - Epistaxis [Recovering/Resolving]
  - Blood creatinine increased [Not Recovered/Not Resolved]
  - Anaemia [Not Recovered/Not Resolved]
  - Ear haemorrhage [Recovering/Resolving]
  - Blood urine present [Not Recovered/Not Resolved]

NARRATIVE: CASE EVENT DATE: 20150331
